FAERS Safety Report 4595092-3 (Version None)
Quarter: 2005Q1

REPORT INFORMATION
  Report Type: 
  Country: None (occurrence: None)
  Receive Date: 20050223
  Receipt Date: 20050211
  Transmission Date: 20050727
  Serious: Yes (Life-Threatening, Hospitalization)
  Sender: FDA-Public Use
  Company Number: 6013051

PATIENT
  Age: 66 Year
  Sex: Male

DRUGS (5)
  1. BISOPROLOL FUMARATE [Suspect]
     Indication: HYPERTENSION
     Dosage: 10 MG TABLETS; ORAL
     Route: 048
     Dates: start: 20040515
  2. CISPLATIN [Suspect]
     Indication: PLEURAL MESOTHELIOMA MALIGNANT
     Dosage: 126 MG, 6 COURSES)
     Dates: start: 20040515, end: 20040223
  3. ALIMTA [Suspect]
     Indication: PLEURAL MESOTHELIOMA MALIGNANT
     Dosage: 845 MG, 6 COURSES)
     Dates: start: 20040515, end: 20040923
  4. NITRIDERM TTS (POULTICE OR PATCH) (GLYCERYL TRINITRATE) [Suspect]
     Indication: HYPERTENSION
     Dosage: 10 MG; TRANSDERMAL
     Route: 062
     Dates: start: 20040515
  5. LEDERFOLINE (CALCIUM FOLINATE) [Suspect]
     Dosage: 15 MG, TABLETS ; ORAL
     Route: 048
     Dates: start: 20040515

REACTIONS (9)
  - CARDIAC FAILURE [None]
  - CARDIO-RESPIRATORY ARREST [None]
  - CARDIOMYOPATHY ALCOHOLIC [None]
  - DILATATION VENTRICULAR [None]
  - METASTASES TO HEART [None]
  - NERVOUS SYSTEM DISORDER [None]
  - PULMONARY OEDEMA [None]
  - RENAL FAILURE [None]
  - VENTRICULAR TACHYCARDIA [None]
